FAERS Safety Report 4810210-7 (Version None)
Quarter: 2005Q4

REPORT INFORMATION
  Report Type: 
  Country: None (occurrence: None)
  Receive Date: 20051026
  Receipt Date: 20051014
  Transmission Date: 20060501
  Serious: Yes (Other)
  Sender: FDA-Public Use
  Company Number: PHBS2005CL15152

PATIENT
  Age: 52 Year
  Sex: Male

DRUGS (4)
  1. NEOSINTROM [Suspect]
     Dosage: 0.5 DF, QD
     Route: 048
  2. TAREG D [Suspect]
     Dosage: VALS 160 / HCT 12.5 MG/DAY
     Route: 048
     Dates: start: 20051001
  3. RAVOTRIL [Concomitant]
  4. ALPRAZOLAM [Concomitant]

REACTIONS (1)
  - THROMBOSIS [None]
